FAERS Safety Report 18551737 (Version 1)
Quarter: 2020Q4

REPORT INFORMATION
  Report Type: Spontaneous
  Country: US (occurrence: US)
  Receive Date: 20201126
  Receipt Date: 20201126
  Transmission Date: 20210114
  Serious: Yes (Life-Threatening, Hospitalization, Disabling, Other)
  Sender: FDA-Public Use
  Company Number: US-009507513-2011USA011757

PATIENT
  Age: 73 Year
  Sex: Female
  Weight: 56.24 kg

DRUGS (20)
  1. PRINIVIL [Suspect]
     Active Substance: LISINOPRIL
     Indication: HYPERTENSION
     Dosage: 10 MG, QD
     Route: 048
     Dates: start: 20100405, end: 20100804
  2. OSCAL [Concomitant]
     Active Substance: CALCIUM CARBONATE
     Dosage: UNK UKN, UNK
  3. ASPIRIN. [Concomitant]
     Active Substance: ASPIRIN
     Dosage: UNK UKN, UNK
  4. RECLAST [Suspect]
     Active Substance: ZOLEDRONIC ACID
     Indication: OSTEOPOROSIS
     Dosage: 5 MG/100 ML ONCE
     Route: 042
     Dates: start: 20100726
  5. ADVAIR HFA [Concomitant]
     Active Substance: FLUTICASONE PROPIONATE\SALMETEROL XINAFOATE
     Dosage: UNK UKN, UNK
  6. METFORMIN [Suspect]
     Active Substance: METFORMIN HYDROCHLORIDE
     Indication: DIABETES MELLITUS
     Dosage: 1000 MG, BID
     Route: 048
     Dates: start: 20100405, end: 20100804
  7. VITAMIN C TOWA [Concomitant]
     Dosage: UNK UKN, UNK
  8. PRANDIN (DEFLAZACORT) [Concomitant]
     Active Substance: DEFLAZACORT
     Dosage: 1 MG, TID
  9. OXYGEN. [Concomitant]
     Active Substance: OXYGEN
     Dosage: UNK UKN, UNK
  10. SODIUM BICARBONATE. [Concomitant]
     Active Substance: SODIUM BICARBONATE
     Dosage: UNK UKN, UNK
  11. INSULIN [Concomitant]
     Active Substance: INSULIN NOS
     Dosage: UNK UKN, UNK
  12. LASIX [Suspect]
     Active Substance: FUROSEMIDE
     Indication: CARDIAC FAILURE CONGESTIVE
     Dosage: 40 MG, QD
     Route: 048
     Dates: start: 20100405, end: 20100804
  13. CHOLESTEROL [Concomitant]
     Active Substance: CHOLESTEROL
     Dosage: UNK UKN, UNK
  14. SYNTHROID [Concomitant]
     Active Substance: LEVOTHYROXINE SODIUM
     Dosage: 125 MG, QD
  15. COREG [Concomitant]
     Active Substance: CARVEDILOL
     Dosage: UNK UKN, UNK
  16. KAYEXALATE [Concomitant]
     Active Substance: SODIUM POLYSTYRENE SULFONATE
     Dosage: UNK UKN, UNK
  17. FOSAMAX [Concomitant]
     Active Substance: ALENDRONATE SODIUM
     Dosage: UNK UKN, UNK
  18. ATENOLOL. [Concomitant]
     Active Substance: ATENOLOL
     Dosage: UNK UKN, UNK
  19. SIMVASTATIN. [Concomitant]
     Active Substance: SIMVASTATIN
     Dosage: 40 MG, QD
  20. SPIRIVA [Concomitant]
     Active Substance: TIOTROPIUM BROMIDE MONOHYDRATE
     Dosage: 18 MG, QD

REACTIONS (34)
  - Blood pressure systolic increased [Unknown]
  - Faeces discoloured [Unknown]
  - Decreased appetite [Unknown]
  - Urinary casts [Recovering/Resolving]
  - Hyperkalaemia [Unknown]
  - Bundle branch block left [Unknown]
  - Blood bicarbonate decreased [Recovering/Resolving]
  - Glomerular filtration rate decreased [Recovering/Resolving]
  - Gastrointestinal haemorrhage [Recovering/Resolving]
  - Renal failure [Unknown]
  - Malaise [Unknown]
  - Mental status changes [Recovering/Resolving]
  - Asthenia [Unknown]
  - Anaemia [Recovering/Resolving]
  - Blood urea increased [Recovering/Resolving]
  - Blood pressure diastolic decreased [Unknown]
  - Dehydration [Unknown]
  - Hypoglycaemia [Recovering/Resolving]
  - Electrocardiogram ST-T change [Unknown]
  - Renal impairment [Recovering/Resolving]
  - Acute kidney injury [Recovering/Resolving]
  - Cardioactive drug level increased [Unknown]
  - Renal cyst haemorrhage [Unknown]
  - Lactic acidosis [Recovering/Resolving]
  - Dyspnoea [Unknown]
  - Metabolic acidosis [Recovering/Resolving]
  - Fatigue [Unknown]
  - Renal tubular necrosis [Recovering/Resolving]
  - Memory impairment [Recovering/Resolving]
  - Feeling cold [Unknown]
  - Hypovolaemia [Unknown]
  - Leukocytosis [Unknown]
  - Electrocardiogram QRS complex prolonged [Unknown]
  - Blood creatinine increased [Recovering/Resolving]

NARRATIVE: CASE EVENT DATE: 20100803
